FAERS Safety Report 25553716 (Version 2)
Quarter: 2025Q4

REPORT INFORMATION
  Report Type: Spontaneous
  Country: EU (occurrence: EU)
  Receive Date: 20250715
  Receipt Date: 20251009
  Transmission Date: 20260118
  Serious: Yes (Other)
  Sender: JOHNSON AND JOHNSON
  Company Number: EU-JNJFOC-20250713885

PATIENT
  Age: 80 Year
  Sex: Female

DRUGS (1)
  1. TECVAYLI [Suspect]
     Active Substance: TECLISTAMAB-CQYV
     Indication: Plasma cell myeloma
     Dosage: LAST DOSE ON 08-APR-2025
     Route: 065

REACTIONS (1)
  - Neuropathy peripheral [Recovering/Resolving]
